FAERS Safety Report 23824606 (Version 4)
Quarter: 2024Q2

REPORT INFORMATION
  Report Type: Report from Study
  Country: EG (occurrence: EG)
  Receive Date: 20240507
  Receipt Date: 20240521
  Transmission Date: 20240716
  Serious: No
  Sender: FDA-Public Use
  Company Number: EG-002147023-NVSC2024EG092066

PATIENT
  Age: 27 Year
  Sex: Female
  Weight: 73 kg

DRUGS (4)
  1. ENTRESTO [Suspect]
     Active Substance: SACUBITRIL\VALSARTAN
     Indication: Heart failure with midrange ejection fraction
     Dosage: 1 DOSAGE FORM, BID
     Route: 048
     Dates: start: 2020
  2. ASPIRIN [Suspect]
     Active Substance: ASPIRIN
     Indication: Anticoagulant therapy
     Dosage: 1 DOSAGE FORM, QD (STARTED 2 YEARS AGO)
     Route: 065
  3. ALDACTONE [Suspect]
     Active Substance: SPIRONOLACTONE
     Indication: Diuretic therapy
     Dosage: 1 DOSAGE FORM, QD (STARTED 2 YEARS AGO)
     Route: 065
  4. DAPAGLIFLOZIN [Suspect]
     Active Substance: DAPAGLIFLOZIN
     Indication: Cardiac disorder
     Dosage: 1 DOSAGE FORM, QD (STARTED 2 YEARS AGO)
     Route: 065

REACTIONS (2)
  - Contraindicated product administered [Unknown]
  - Maternal exposure during pregnancy [Unknown]

NARRATIVE: CASE EVENT DATE: 20230201
